FAERS Safety Report 13267621 (Version 1)
Quarter: 2017Q1

REPORT INFORMATION
  Report Type: Spontaneous
  Country: US (occurrence: US)
  Receive Date: 20170223
  Receipt Date: 20170223
  Transmission Date: 20170428
  Serious: No
  Sender: FDA-Public Use
  Company Number: None

PATIENT
  Age: 64 Year
  Sex: Female
  Weight: 58.95 kg

DRUGS (1)
  1. AREDIA [Suspect]
     Active Substance: PAMIDRONATE DISODIUM
     Indication: OSTEOPENIA

REACTIONS (4)
  - Arthralgia [None]
  - Alopecia [None]
  - Visual impairment [None]
  - Dyspnoea [None]

NARRATIVE: CASE EVENT DATE: 20161024
